FAERS Safety Report 10100445 (Version 2)
Quarter: 2014Q2

REPORT INFORMATION
  Report Type: Spontaneous
  Country: BR (occurrence: BR)
  Receive Date: 20140423
  Receipt Date: 20140423
  Transmission Date: 20141212
  Serious: Yes (Other)
  Sender: FDA-Public Use
  Company Number: BR-SANOFI-AVENTIS-2013SA062685

PATIENT
  Age: 29 Year
  Sex: Female
  Weight: 88 kg

DRUGS (2)
  1. CLEXANE [Suspect]
     Indication: HYPERCOAGULATION
     Route: 051
     Dates: start: 201212, end: 201401
  2. CLEXANE [Suspect]
     Indication: PROPHYLAXIS
     Route: 051
     Dates: start: 201212, end: 201401

REACTIONS (2)
  - Amniotic fluid volume decreased [Recovered/Resolved]
  - Exposure during pregnancy [Unknown]
